FAERS Safety Report 19154501 (Version 1)
Quarter: 2021Q2

REPORT INFORMATION
  Report Type: Report from Study
  Country: US (occurrence: US)
  Receive Date: 20210419
  Receipt Date: 20210419
  Transmission Date: 20210717
  Serious: Yes (Death)
  Sender: FDA-Public Use
  Company Number: US-JNJFOC-20210419565

PATIENT
  Age: 37 Year
  Sex: Male

DRUGS (3)
  1. SPRAVATO [Suspect]
     Active Substance: ESKETAMINE
     Indication: DEPRESSION
     Dosage: 56 MG, 2 TOTAL DOSES
     Dates: start: 20201124, end: 20201201
  2. SPRAVATO [Suspect]
     Active Substance: ESKETAMINE
     Dosage: 56 MG, 1 TOTAL DOSE
     Dates: start: 20200401, end: 20200401
  3. SPRAVATO [Suspect]
     Active Substance: ESKETAMINE
     Dosage: 84 MG, 18 TOTAL DOSES
     Dates: start: 20201204, end: 20210205

REACTIONS (1)
  - Death [Fatal]

NARRATIVE: CASE EVENT DATE: 20210406
